FAERS Safety Report 23142838 (Version 1)
Quarter: 2023Q4

REPORT INFORMATION
  Report Type: Spontaneous
  Country: FR (occurrence: FR)
  Receive Date: 20231103
  Receipt Date: 20231103
  Transmission Date: 20240110
  Serious: No
  Sender: FDA-Public Use
  Company Number: FR-PFIZER INC-202300289835

PATIENT
  Age: 52 Year
  Sex: Male
  Weight: 89 kg

DRUGS (1)
  1. ENBREL [Suspect]
     Active Substance: ETANERCEPT
     Dosage: 50 MG, WEEKLY

REACTIONS (1)
  - Device delivery system issue [Unknown]
